FAERS Safety Report 18476909 (Version 2)
Quarter: 2020Q4

REPORT INFORMATION
  Report Type: Report from Study
  Country: KR (occurrence: KR)
  Receive Date: 20201107
  Receipt Date: 20201126
  Transmission Date: 20210114
  Serious: Yes (Other)
  Sender: FDA-Public Use
  Company Number: NVSC2020KR298797

PATIENT
  Age: 53 Year
  Sex: Female
  Weight: 58 kg

DRUGS (16)
  1. MIRCERA [Concomitant]
     Active Substance: METHOXY POLYETHYLENE GLYCOL-EPOETIN BETA
     Indication: DIABETIC NEPHROPATHY
     Dosage: 0.3 ML, UNKNOWN
     Route: 065
     Dates: start: 20200727
  2. PREGREL [Concomitant]
     Indication: CORONARY ARTERY DISEASE
     Dosage: 75 MG, QD
     Route: 048
     Dates: start: 20200319
  3. ATOZET [Concomitant]
     Active Substance: ATORVASTATIN CALCIUM\EZETIMIBE
     Indication: CORONARY ARTERY DISEASE
     Dosage: 1 DF, QD
     Route: 048
     Dates: start: 20200321
  4. TRAJENTA [Concomitant]
     Active Substance: LINAGLIPTIN
     Indication: DIABETIC NEPHROPATHY
     Dosage: 5 MG, QD
     Route: 048
     Dates: start: 20200311
  5. KALIMATE [Concomitant]
     Active Substance: CALCIUM POLYSTYRENE SULFONATE
     Indication: DIABETIC NEPHROPATHY
     Dosage: 10 G, QD (POWDER)
     Route: 048
     Dates: start: 20200406
  6. LASIX [Concomitant]
     Active Substance: FUROSEMIDE
     Indication: CARDIAC FAILURE CHRONIC
     Dosage: 60 MG, QD
     Route: 048
     Dates: start: 20200310
  7. ALDACTONE [Concomitant]
     Active Substance: SPIRONOLACTONE
     Indication: CARDIAC FAILURE CHRONIC
     Dosage: 25 MG, BID
     Route: 048
     Dates: start: 20200310
  8. FEBURIC [Concomitant]
     Active Substance: FEBUXOSTAT
     Indication: DIABETIC NEPHROPATHY
     Dosage: 0.5 DF, UNKNOWN
     Route: 065
     Dates: start: 20200406
  9. ENTRESTO [Suspect]
     Active Substance: SACUBITRIL\VALSARTAN
     Indication: CARDIAC FAILURE CHRONIC
     Dosage: 50 MG, BID
     Route: 048
     Dates: start: 20200504
  10. ASPIRIN PROTECT [Concomitant]
     Active Substance: ASPIRIN
     Indication: CORONARY ARTERY DISEASE
     Dosage: 100 MG, QD
     Route: 048
     Dates: start: 20200320
  11. FEROBA U [Concomitant]
     Active Substance: FERROUS SULFATE
     Indication: DIABETIC NEPHROPATHY
     Dosage: 200 MG, QD
     Route: 048
     Dates: start: 20200504
  12. VESSEL DUE F [Concomitant]
     Active Substance: SULODEXIDE
     Indication: DIABETIC RETINOPATHY
     Dosage: 1 DF (500 LSU), BID
     Route: 048
     Dates: start: 20200727
  13. PROCORALAN [Concomitant]
     Active Substance: IVABRADINE
     Indication: CORONARY ARTERY DISEASE
     Dosage: 10 MG, BID
     Route: 048
     Dates: start: 20200325
  14. COMBIGAN [Concomitant]
     Active Substance: BRIMONIDINE TARTRATE\TIMOLOL MALEATE
     Indication: DIABETIC RETINOPATHY
     Dosage: 15 ML, BID (FOR 3 MONTHS)
     Route: 047
     Dates: start: 20200727
  15. DILATREND [Concomitant]
     Active Substance: CARVEDILOL
     Indication: CARDIAC FAILURE CHRONIC
     Dosage: 12.5 MG, BID
     Route: 048
     Dates: start: 20200310
  16. DEXIDE [Concomitant]
     Indication: DIABETIC NEPHROPATHY
     Dosage: 480 MG, QD
     Route: 048
     Dates: start: 20200316

REACTIONS (1)
  - Loss of consciousness [Recovered/Resolved]

NARRATIVE: CASE EVENT DATE: 20200504
